FAERS Safety Report 22344508 (Version 1)
Quarter: 2023Q2

REPORT INFORMATION
  Report Type: Other
  Country: US (occurrence: None)
  Receive Date: 20230519
  Receipt Date: 20230519
  Transmission Date: 20230721
  Serious: Yes (Hospitalization, Other)
  Sender: FDA-Public Use
  Company Number: US-Navinta LLC-000443

PATIENT
  Age: 22 Year
  Sex: Male

DRUGS (7)
  1. BENZTROPINE [Suspect]
     Active Substance: BENZTROPINE
     Indication: Muscle rigidity
     Dosage: 0.5 MG TWICE DAILY
     Route: 048
  2. CLOZAPINE [Suspect]
     Active Substance: CLOZAPINE
     Indication: Product used for unknown indication
     Dosage: 200 MG/DAY
  3. BROMOCRIPTINE [Concomitant]
     Active Substance: BROMOCRIPTINE
     Indication: Neuroleptic malignant syndrome
     Dosage: 5 MG
     Route: 045
  4. ZOLPIDEM [Concomitant]
     Active Substance: ZOLPIDEM TARTRATE
     Indication: Product used for unknown indication
     Dosage: 5 MG DAILY
  5. LORAZEPAM [Concomitant]
     Active Substance: LORAZEPAM
     Indication: Product used for unknown indication
     Dosage: 1 MG
     Route: 048
  6. BENZTROPINE [Suspect]
     Active Substance: BENZTROPINE
     Indication: Muscle rigidity
     Dosage: 0.5 MG IV TWICE DAILY
     Route: 042
  7. CLOZAPINE [Suspect]
     Active Substance: CLOZAPINE
     Indication: Product used for unknown indication
     Dosage: 175 MG/DAY

REACTIONS (4)
  - Urinary tract infection [Unknown]
  - Urinary retention [Recovering/Resolving]
  - Malignant catatonia [Recovered/Resolved]
  - Condition aggravated [Recovered/Resolved]
